FAERS Safety Report 12990006 (Version 4)
Quarter: 2017Q3

REPORT INFORMATION
  Report Type: Spontaneous
  Country: GB (occurrence: GB)
  Receive Date: 20161201
  Receipt Date: 20170725
  Transmission Date: 20171127
  Serious: Yes (Hospitalization)
  Sender: FDA-Public Use
  Company Number: GB-009507513-1611GBR014015

PATIENT
  Age: 75 Year
  Sex: Female

DRUGS (13)
  1. DEXAMETHASONE. [Suspect]
     Active Substance: DEXAMETHASONE
     Indication: PLASMA CELL MYELOMA
     Dosage: 5.7143 MG (40 MG, 1 IN 1 WK)
     Route: 048
     Dates: start: 20161031
  2. REVLIMID [Suspect]
     Active Substance: LENALIDOMIDE
     Indication: PLASMA CELL MYELOMA
     Dosage: 25 MG (25 MG, 1 IN 1D)
     Route: 048
     Dates: start: 20161031
  3. ACETAMINOPHEN. [Concomitant]
     Active Substance: ACETAMINOPHEN
     Indication: PRODUCT USED FOR UNKNOWN INDICATION
     Dosage: 4 TO 6 HOURLY (1 GM, 1 IN 1 D)
     Route: 048
  4. LEVOTHYROXINE SODIUM. [Concomitant]
     Active Substance: LEVOTHYROXINE SODIUM
     Indication: HYPOTHYROIDISM
     Dosage: 50 MCG (50 MCG, 1 IN 1 D)
     Route: 048
     Dates: start: 20160706
  5. AMOXICILLIN. [Concomitant]
     Active Substance: AMOXICILLIN
     Indication: PRODUCT USED FOR UNKNOWN INDICATION
     Dosage: UNKNOWN (UNKNOWN,UNKNOWN)
     Route: 065
  6. CALCICHEW [Concomitant]
     Active Substance: CALCIUM CARBONATE
     Indication: PROPHYLAXIS
     Dosage: 2 DOSAGE FORMS (1 DOSAGE FORMS, 2 IN 1 D)
     Route: 048
     Dates: start: 20131108
  7. OMEPRAZOLE. [Concomitant]
     Active Substance: OMEPRAZOLE
     Indication: GASTRITIS PROPHYLAXIS
     Dosage: 20 MG (20 MG, 1 IN 1 D)
     Route: 048
  8. ALLOPURINOL. [Concomitant]
     Active Substance: ALLOPURINOL
     Indication: PROPHYLAXIS
     Dosage: 300 MG (300 MG, 1 IN 1 D)
     Route: 048
     Dates: start: 20161031
  9. DALTEPARIN SODIUM [Concomitant]
     Active Substance: DALTEPARIN SODIUM
     Indication: PROPHYLAXIS
     Dosage: 5000 IU (5000 IU, 1 IN 1 D)
     Route: 058
     Dates: start: 20161031
  10. PREDNISOLONE. [Concomitant]
     Active Substance: PREDNISOLONE
     Indication: POLYMYALGIA RHEUMATICA
     Dosage: 5 MG (5 MG, 1 IN 1 D)
     Route: 048
     Dates: start: 20141210
  11. AMLODIPINE [Concomitant]
     Active Substance: AMLODIPINE BESYLATE
     Indication: HYPERTENSION
     Dosage: 5 MG, (5 MG, 1 IN 1D)
     Route: 048
     Dates: start: 20161111
  12. ALENDRONIC ACID [Concomitant]
     Active Substance: ALENDRONIC ACID
     Indication: PROPHYLAXIS
     Dosage: UNKNOWN (70 MG, 1 IN 1 WK)
     Route: 048
     Dates: start: 20131103
  13. DICLOFENAC [Concomitant]
     Active Substance: DICLOFENAC
     Indication: PAIN
     Dosage: 1 WEEK, 3 TIMES (UNKNOWN)
     Route: 061
     Dates: start: 20160706

REACTIONS (3)
  - Diarrhoea [Recovered/Resolved]
  - Rash generalised [Recovered/Resolved]
  - Pyrexia [Not Recovered/Not Resolved]

NARRATIVE: CASE EVENT DATE: 20161109
